FAERS Safety Report 13577943 (Version 1)
Quarter: 2017Q2

REPORT INFORMATION
  Report Type: Spontaneous
  Country: DE (occurrence: DE)
  Receive Date: 20170524
  Receipt Date: 20170524
  Transmission Date: 20170830
  Serious: Yes (Hospitalization, Other)
  Sender: FDA-Public Use
  Company Number: DE-BRISTOL-MYERS SQUIBB COMPANY-BMS-2017-044663

PATIENT
  Age: 56 Year

DRUGS (1)
  1. WARFARIN SODIUM. [Suspect]
     Active Substance: WARFARIN SODIUM
     Indication: PRODUCT USED FOR UNKNOWN INDICATION
     Route: 065

REACTIONS (6)
  - Arterial rupture [Unknown]
  - Thoracic operation [Unknown]
  - Atelectasis [Unknown]
  - Transfusion [Unknown]
  - Thoracostomy [Unknown]
  - Haemothorax [Unknown]
